FAERS Safety Report 11792175 (Version 2)
Quarter: 2015Q4

REPORT INFORMATION
  Report Type: Spontaneous
  Country: US (occurrence: US)
  Receive Date: 20151201
  Receipt Date: 20151222
  Transmission Date: 20160305
  Serious: No
  Sender: FDA-Public Use
  Company Number: US-ASTRAZENECA-2015SF09987

PATIENT
  Sex: Female

DRUGS (1)
  1. PULMICORT FLEXHALER [Suspect]
     Active Substance: BUDESONIDE
     Dosage: 180 MCG, 1 PUFF TWICE A DAY
     Route: 055

REACTIONS (5)
  - Bronchitis [Unknown]
  - Device malfunction [Unknown]
  - Intentional product misuse [Unknown]
  - Drug dose omission [Unknown]
  - Pneumonia [Unknown]
